FAERS Safety Report 12262206 (Version 2)
Quarter: 2016Q3

REPORT INFORMATION
  Report Type: Spontaneous
  Country: FR (occurrence: FR)
  Receive Date: 20160413
  Receipt Date: 20160812
  Transmission Date: 20161109
  Serious: Yes (Hospitalization)
  Sender: FDA-Public Use
  Company Number: FR-ROCHE-1740951

PATIENT
  Age: 69 Year
  Sex: Female

DRUGS (5)
  1. CELLCEPT [Suspect]
     Active Substance: MYCOPHENOLATE MOFETIL\MYCOPHENOLATE MOFETIL HYDROCHLORIDE
     Indication: LUNG TRANSPLANT
     Route: 048
     Dates: start: 2012, end: 20160322
  2. CORTANCYL [Concomitant]
     Active Substance: PREDNISONE
  3. PROGRAF [Suspect]
     Active Substance: TACROLIMUS\TACROLIMUS ANHYDROUS
     Indication: LUNG TRANSPLANT
     Route: 048
     Dates: start: 2012, end: 20160317
  4. WELLVONE [Concomitant]
     Active Substance: ATOVAQUONE
  5. TYGACIL [Suspect]
     Active Substance: TIGECYCLINE
     Indication: STENOTROPHOMONAS INFECTION
     Route: 042
     Dates: start: 20160319, end: 20160326

REACTIONS (1)
  - Pancreatitis acute [Recovering/Resolving]

NARRATIVE: CASE EVENT DATE: 20160326
